FAERS Safety Report 15625290 (Version 3)
Quarter: 2019Q2

REPORT INFORMATION
  Report Type: Report from Study
  Country: US (occurrence: US)
  Receive Date: 20181116
  Receipt Date: 20190618
  Transmission Date: 20190711
  Serious: Yes (Hospitalization)
  Sender: FDA-Public Use
  Company Number: PHEH2018US047712

PATIENT
  Age: 52 Year
  Sex: Female

DRUGS (2)
  1. POTASSIUM [Concomitant]
     Active Substance: POTASSIUM
     Indication: PRODUCT USED FOR UNKNOWN INDICATION
     Dosage: UNK
     Route: 065
  2. GILENYA [Suspect]
     Active Substance: FINGOLIMOD HYDROCHLORIDE
     Indication: MULTIPLE SCLEROSIS
     Dosage: 0.5 MG, QD
     Route: 048

REACTIONS (10)
  - Multiple sclerosis relapse [Unknown]
  - Fatigue [Unknown]
  - Dyspnoea [Unknown]
  - Urinary tract infection [Unknown]
  - Mobility decreased [Unknown]
  - Anxiety [Unknown]
  - Rash [Unknown]
  - Seizure [Unknown]
  - Asthenia [Unknown]
  - White blood cell count decreased [Recovered/Resolved]

NARRATIVE: CASE EVENT DATE: 201810
